FAERS Safety Report 5178820-8 (Version None)
Quarter: 2006Q4

REPORT INFORMATION
  Report Type: 
  Country: None (occurrence: None)
  Receive Date: 20061208
  Receipt Date: 20061129
  Transmission Date: 20070319
  Serious: Yes (Other)
  Sender: FDA-Public Use
  Company Number: B0447823A

PATIENT
  Age: 30 Year
  Sex: Female

DRUGS (3)
  1. PAXIL [Suspect]
     Indication: DEPRESSION
     Dosage: 20 MG/PER DAY
  2. AMITRIPTYLINE HCL [Suspect]
     Indication: DEPRESSION
     Dosage: 225 MG/PER DAY
  3. VALPROIC ACID [Suspect]
     Indication: BIPOLAR DISORDER
     Dosage: 900 MG/PER DAY

REACTIONS (4)
  - ANTIDEPRESSANT DRUG LEVEL INCREASED [None]
  - DRUG INTERACTION INHIBITION [None]
  - DRUG TOXICITY [None]
  - GRAND MAL CONVULSION [None]
